FAERS Safety Report 22595862 (Version 1)
Quarter: 2023Q2

REPORT INFORMATION
  Report Type: Spontaneous
  Country: US (occurrence: None)
  Receive Date: 20230612
  Receipt Date: 20230612
  Transmission Date: 20230721
  Serious: Yes (Hospitalization)
  Sender: FDA-Public Use
  Company Number: None

PATIENT
  Sex: Male

DRUGS (24)
  1. MYCOPHENOLIC ACID [Suspect]
     Active Substance: MYCOPHENOLIC ACID
     Indication: Renal transplant
     Dosage: 180 MG  ORAL??TAKE 3 TABLETS BY MOUTH TWICE DAILY
     Route: 048
     Dates: start: 20170509
  2. MYCOPHENOLIC ACID [Suspect]
     Active Substance: MYCOPHENOLIC ACID
     Dosage: FREQUENCY : TWICE A DAY;?
     Route: 048
  3. CLONIDINE [Concomitant]
  4. FREESTYLE [Concomitant]
  5. GABAPENTIN [Concomitant]
  6. GAMUNEX-C [Concomitant]
     Active Substance: HUMAN IMMUNOGLOBULIN G
  7. HUMALOG [Concomitant]
  8. LIPITOR [Concomitant]
  9. LOSARTAN POTASSIUM [Concomitant]
     Active Substance: LOSARTAN POTASSIUM
  10. MAGNESIUM [Concomitant]
  11. METOPROLOL TARTRATE [Concomitant]
     Active Substance: METOPROLOL TARTRATE
  12. MULTI-VITAMIN [Concomitant]
  13. MULTIVIT/FL CHW [Concomitant]
  14. OMEPRAZOLE [Concomitant]
  15. ORTHOVISC [Concomitant]
  16. PARICALCITOL [Concomitant]
  17. PREDNISONE [Concomitant]
  18. PROGRAF [Concomitant]
     Active Substance: TACROLIMUS
  19. SULFAMERAZIN POW [Concomitant]
  20. TACROLIMUS [Concomitant]
     Active Substance: TACROLIMUS
  21. VITAMIN A+D [Concomitant]
  22. VITAMIN D3 [Concomitant]
     Active Substance: CHOLECALCIFEROL
  23. VITAMIN E [Concomitant]
     Active Substance: .ALPHA.-TOCOPHEROL
  24. XYOSTED [Concomitant]
     Active Substance: TESTOSTERONE ENANTHATE

REACTIONS (1)
  - Hospitalisation [None]
